FAERS Safety Report 12995327 (Version 1)
Quarter: 2016Q4

REPORT INFORMATION
  Report Type: Spontaneous
  Country: RU (occurrence: RU)
  Receive Date: 20161202
  Receipt Date: 20161202
  Transmission Date: 20170207
  Serious: Yes (Other)
  Sender: FDA-Public Use
  Company Number: RU-ASTRAZENECA-2016SF26318

PATIENT
  Age: 81 Year
  Sex: Female
  Weight: 62 kg

DRUGS (7)
  1. PERINEVA [Concomitant]
     Active Substance: PERINDOPRIL ERBUMINE
  2. BRILINTA [Suspect]
     Active Substance: TICAGRELOR
     Indication: MYOCARDIAL INFARCTION
     Route: 048
     Dates: start: 20160810
  3. OMEPRAZOLE. [Concomitant]
     Active Substance: OMEPRAZOLE
  4. CONCOR [Concomitant]
     Active Substance: BISOPROLOL FUMARATE
  5. CARDIOMAGNYL [Concomitant]
     Active Substance: ASPIRIN\MAGNESIUM HYDROXIDE
  6. SIMVASTOL [Concomitant]
  7. EXTRACTUM VALERIANAE [Concomitant]

REACTIONS (3)
  - Rib fracture [Not Recovered/Not Resolved]
  - Contusion [Not Recovered/Not Resolved]
  - Fall [Unknown]

NARRATIVE: CASE EVENT DATE: 20161018
